FAERS Safety Report 4375002-4 (Version None)
Quarter: 2004Q2

REPORT INFORMATION
  Report Type: 
  Country: None (occurrence: None)
  Receive Date: 20040604
  Receipt Date: 20030519
  Transmission Date: 20050107
  Serious: Yes (Hospitalization)
  Sender: FDA-Public Use
  Company Number: D01200300647

PATIENT
  Age: 73 Year
  Sex: Male

DRUGS (16)
  1. (OXALIPLATIN) - SOLUTION - 85 MG/M2 [Suspect]
     Dosage: 85 MG/M2 Q2W INTRAVENOUS NOS
     Route: 042
     Dates: start: 20030507, end: 20030507
  2. FLUOROURACIL [Suspect]
     Dosage: SEE IMAGE
     Route: 042
     Dates: start: 20030507, end: 20030508
  3. (SR57746 OR PLACEBO) - CAPSULE - 1 MG [Suspect]
     Indication: COLORECTAL CANCER METASTATIC
     Dosage: SEE IMAGE
     Route: 048
     Dates: start: 20030324, end: 20030508
  4. (SR57746 OR PLACEBO) - CAPSULE - 1 MG [Suspect]
     Indication: NEUROTOXICITY
     Dosage: SEE IMAGE
     Route: 048
     Dates: start: 20030324, end: 20030508
  5. (SR57746 OR PLACEBO) - CAPSULE - 1 MG [Suspect]
     Indication: PROPHYLAXIS
     Dosage: SEE IMAGE
     Route: 048
     Dates: start: 20030324, end: 20030508
  6. LEUCOVORIN CALCIUM [Suspect]
     Dosage: SEE IMAGE
     Route: 042
     Dates: start: 20030507, end: 20030508
  7. METFORMIN HCL [Concomitant]
  8. LISINOPRIL [Concomitant]
  9. PROSCAR [Concomitant]
  10. IBUPROFEN [Concomitant]
  11. WARFARIN SODIUM [Concomitant]
  12. LANSOPRAZOLE [Concomitant]
  13. BECONASE (BECLOMETASONE DIPROPIONATE) [Concomitant]
  14. ERYTHROMYCIN [Concomitant]
  15. ONDANSETRON [Concomitant]
  16. METOCLOPRAMIDE [Concomitant]

REACTIONS (6)
  - BLOOD FIBRINOGEN INCREASED [None]
  - HAEMOGLOBIN DECREASED [None]
  - INTERNATIONAL NORMALISED RATIO DECREASED [None]
  - PLATELET COUNT DECREASED [None]
  - STAPHYLOCOCCAL INFECTION [None]
  - WOUND INFECTION [None]
